FAERS Safety Report 18124057 (Version 3)
Quarter: 2020Q4

REPORT INFORMATION
  Report Type: Report from Study
  Country: US (occurrence: US)
  Receive Date: 20200807
  Receipt Date: 20201001
  Transmission Date: 20210113
  Serious: Yes (Other)
  Sender: FDA-Public Use
  Company Number: NVSC2020US216008

PATIENT
  Age: 77 Year
  Sex: Male

DRUGS (1)
  1. ENTRESTO [Suspect]
     Active Substance: SACUBITRIL\VALSARTAN
     Indication: PRODUCT USED FOR UNKNOWN INDICATION
     Dosage: 1 DF (24/26 MG), BID
     Route: 048
     Dates: start: 202003

REACTIONS (10)
  - Vitamin B12 decreased [Unknown]
  - Hiccups [Unknown]
  - Procedural shock [Recovered/Resolved]
  - Joint injury [Unknown]
  - Vitamin D decreased [Unknown]
  - Cough [Unknown]
  - Musculoskeletal stiffness [Unknown]
  - Thrombosis [Unknown]
  - Nasopharyngitis [Unknown]
  - Fall [Unknown]

NARRATIVE: CASE EVENT DATE: 20200410
